FAERS Safety Report 6298091-9 (Version None)
Quarter: 2009Q3

REPORT INFORMATION
  Report Type: 
  Country: None (occurrence: None)
  Receive Date: 20090804
  Receipt Date: 20090804
  Transmission Date: 20100115
  Serious: No
  Sender: FDA-Public Use
  Company Number: None

PATIENT

DRUGS (2)
  1. FOSAMAX [Suspect]
     Indication: OSTEOPENIA
     Dosage: ONE TABLET ONCE WEEKLY PO
     Route: 048
     Dates: start: 19950101, end: 20090101
  2. FOSAMAX [Suspect]
     Indication: OSTEOPOROSIS
     Dosage: ONE TABLET ONCE WEEKLY PO
     Route: 048
     Dates: start: 19950101, end: 20090101

REACTIONS (5)
  - BACK PAIN [None]
  - FOOT FRACTURE [None]
  - LUMBAR VERTEBRAL FRACTURE [None]
  - OPEN FRACTURE [None]
  - PAIN IN JAW [None]
